FAERS Safety Report 6929007-7 (Version None)
Quarter: 2010Q3

REPORT INFORMATION
  Report Type: 
  Country: None (occurrence: None)
  Receive Date: 20100817
  Receipt Date: 20100811
  Transmission Date: 20110219
  Serious: Yes (Death, Hospitalization, Other)
  Sender: FDA-Public Use
  Company Number: PHEH2008US09068

PATIENT
  Sex: Female

DRUGS (61)
  1. AREDIA [Suspect]
     Dosage: UNK
     Dates: start: 20030922, end: 20050101
  2. ZOMETA [Suspect]
     Indication: HYPERCALCAEMIA
     Dosage: 4 MG /  MONTHLY
     Route: 042
     Dates: end: 20071025
  3. ZOMETA [Suspect]
     Dosage: 2 MG
     Dates: start: 20050512, end: 20071025
  4. METFORMIN [Concomitant]
  5. LISINOPRIL [Suspect]
  6. NABUMETONE [Concomitant]
  7. HYDROCHLOROTHIAZIDE [Concomitant]
  8. KLOR-CON [Concomitant]
  9. GEMFIBROZIL [Concomitant]
  10. MULTI-VITAMINS [Concomitant]
  11. CALCIUM [Concomitant]
  12. PRILOSEC [Concomitant]
  13. VICODIN [Concomitant]
  14. AROMASIN [Concomitant]
     Dosage: 25MG DAILY
  15. TAMOXIFEN CITRATE [Concomitant]
  16. ZESTRIL [Concomitant]
     Indication: HYPERTENSION
     Dosage: 10 MG / DAILY
  17. ORUVAIL [Concomitant]
     Dosage: 200 MG / DAILY
     Route: 048
  18. ADVIL LIQUI-GELS [Concomitant]
     Dosage: UNK
  19. PRINIVIL [Concomitant]
     Dosage: UNK
  20. TAXOL [Concomitant]
     Dosage: UNK
  21. XELODA [Concomitant]
     Dosage: UNK
  22. DEXAMETHASONE [Concomitant]
     Dosage: 4 MG
  23. LASIX [Concomitant]
     Dosage: 40 MG / DAILY
     Route: 048
  24. GLUCOSAMINE [Concomitant]
     Dosage: 500 MG / DAILY
     Route: 048
  25. COQ10 [Concomitant]
     Dosage: UNK
  26. CEPHRADINE [Concomitant]
     Dosage: 250 MG
  27. TUSSI-ORGANIDIN ^HORNER^ [Concomitant]
     Dosage: UNK
  28. AMOXIL ^AYERST LAB^ [Concomitant]
     Dosage: 500 MG
  29. SELDANE [Concomitant]
     Dosage: 60 MG
  30. LIVOSTIN [Concomitant]
     Dosage: UNK
  31. KETOPROFEN [Concomitant]
     Dosage: 200 MG
  32. HYDROCODONE BITARTRATE AND ACETAMINOPHEN [Concomitant]
     Dosage: UNK
  33. CEPHALEXIN [Concomitant]
     Dosage: 500 MG
  34. ALPRAZOLAM [Concomitant]
     Dosage: 0.25 MG
  35. AMBIEN [Concomitant]
     Dosage: 10 MG
  36. PROPACET 100 [Concomitant]
     Dosage: UNK
  37. ALLEGRA [Concomitant]
     Dosage: 60 MG
  38. CELEBREX [Concomitant]
     Dosage: 200 MG
  39. OCUFLOX [Concomitant]
     Dosage: UNK
  40. CYCLOGYL [Concomitant]
     Dosage: UNK
  41. FAMOTIDINE [Concomitant]
     Dosage: 20 MG
  42. PROTONIX [Concomitant]
     Dosage: 40 MG
  43. POTASSIUM CHLORIDE [Concomitant]
     Dosage: UNK
  44. CARISOPRODOL [Concomitant]
     Dosage: 350 MG
  45. DETROL [Concomitant]
     Dosage: 4 MG
  46. PREDNISOLONE ACETATE [Concomitant]
     Dosage: UNK
  47. ATROVENT [Concomitant]
     Dosage: UNK
  48. INDOMETHACIN [Concomitant]
     Dosage: 50 MG
  49. MORPHINE SULFATE [Concomitant]
     Dosage: 15 MG
  50. TRIAMCINOLONE [Concomitant]
     Dosage: UNK
  51. AZITHROMYCIN [Concomitant]
     Dosage: 250 MG
  52. CYCLOBENZAPRINE [Concomitant]
     Dosage: 10 MG
  53. OXYCODONE HCL AND ACETAMINOPHEN [Concomitant]
     Dosage: UNK
  54. LYRICA [Concomitant]
     Dosage: 50 MG
  55. PROCHLORPERAZINE [Concomitant]
     Dosage: 10 MG
  56. NEURONTIN [Concomitant]
     Indication: ANALGESIC THERAPY
  57. CHEMOTHERAPEUTICS NOS [Concomitant]
  58. AVASTIN [Concomitant]
  59. ARANESP [Concomitant]
     Indication: ANAEMIA
  60. FOSAMAX [Concomitant]
  61. RELAFEN [Concomitant]

REACTIONS (74)
  - ANAEMIA [None]
  - ANHEDONIA [None]
  - ANKLE FRACTURE [None]
  - ANXIETY [None]
  - ARTHRALGIA [None]
  - ARTHROPATHY [None]
  - ASTHENIA [None]
  - ATELECTASIS [None]
  - BACK PAIN [None]
  - BASAL CELL CARCINOMA [None]
  - BLOOD COUNT ABNORMAL [None]
  - BLOOD CREATININE INCREASED [None]
  - BONE DISORDER [None]
  - BONE PAIN [None]
  - BREAST CANCER [None]
  - BREAST CANCER METASTATIC [None]
  - CARDIAC FAILURE CONGESTIVE [None]
  - CEREBRAL ATROPHY [None]
  - CEREBRAL ISCHAEMIA [None]
  - CERVIX HAEMORRHAGE UTERINE [None]
  - CONSTIPATION [None]
  - DEPRESSED LEVEL OF CONSCIOUSNESS [None]
  - DISABILITY [None]
  - DISORIENTATION [None]
  - DRUG INTOLERANCE [None]
  - DYSPNOEA [None]
  - EPICONDYLITIS [None]
  - FIBULA FRACTURE [None]
  - FLUID RETENTION [None]
  - FURUNCLE [None]
  - GASTROOESOPHAGEAL REFLUX DISEASE [None]
  - HEPATIC CYST [None]
  - HEPATIC LESION [None]
  - HERPES ZOSTER [None]
  - HYPERCHOLESTEROLAEMIA [None]
  - HYPERTENSION [None]
  - HYPOAESTHESIA [None]
  - INJURY [None]
  - INTERVERTEBRAL DISC DEGENERATION [None]
  - INTERVERTEBRAL DISC PROTRUSION [None]
  - INTERVERTEBRAL DISC SPACE NARROWING [None]
  - LUNG NEOPLASM [None]
  - MALAISE [None]
  - MALIGNANT NEOPLASM PROGRESSION [None]
  - METASTASES TO LIVER [None]
  - METASTASES TO LUNG [None]
  - MIGRAINE [None]
  - MUSCULOSKELETAL PAIN [None]
  - NAUSEA [None]
  - NEUROPATHY PERIPHERAL [None]
  - OEDEMA PERIPHERAL [None]
  - OPEN REDUCTION OF FRACTURE [None]
  - OSTEOARTHRITIS [None]
  - OSTEONECROSIS OF JAW [None]
  - OVERWEIGHT [None]
  - PAIN [None]
  - PAIN IN EXTREMITY [None]
  - PATHOLOGICAL FRACTURE [None]
  - PERIPHERAL VASCULAR DISORDER [None]
  - PLEURAL EFFUSION [None]
  - POLYP [None]
  - PYREXIA [None]
  - RADICAL MASTECTOMY [None]
  - ROTATOR CUFF SYNDROME [None]
  - SEBORRHOEIC KERATOSIS [None]
  - SURGERY [None]
  - SYNOVIAL CYST [None]
  - TOOTH ABSCESS [None]
  - TOOTH EXTRACTION [None]
  - TYPE 2 DIABETES MELLITUS [None]
  - URINARY TRACT INFECTION [None]
  - UTERINE CERVICAL SQUAMOUS METAPLASIA [None]
  - UTERINE HAEMORRHAGE [None]
  - WALKING AID USER [None]
